FAERS Safety Report 17638216 (Version 2)
Quarter: 2020Q2

REPORT INFORMATION
  Report Type: Report from Study
  Country: US (occurrence: US)
  Receive Date: 20200407
  Receipt Date: 20200408
  Transmission Date: 20200713
  Serious: Yes (Hospitalization, Other)
  Sender: FDA-Public Use
  Company Number: US-ROCHE-2573831

PATIENT
  Age: 68 Year
  Sex: Female
  Weight: 77.18 kg

DRUGS (2)
  1. ANTIBIOTICS [Concomitant]
     Active Substance: UNSPECIFIED INGREDIENT
     Indication: INFECTION
     Route: 065
     Dates: start: 20190122
  2. OCREVUS [Suspect]
     Active Substance: OCRELIZUMAB
     Indication: PROGRESSIVE MULTIPLE SCLEROSIS
     Dosage: 23/OCT/2018, 14/MAY/2019, 21/NOV/2019
     Route: 041
     Dates: start: 20181009, end: 201911

REACTIONS (8)
  - Skin abrasion [Not Recovered/Not Resolved]
  - Diabetic foot [Not Recovered/Not Resolved]
  - Muscular weakness [Not Recovered/Not Resolved]
  - Femur fracture [Recovering/Resolving]
  - Fall [Unknown]
  - Hip fracture [Recovered/Resolved]
  - Arthritis infective [Recovered/Resolved]
  - Localised infection [Not Recovered/Not Resolved]

NARRATIVE: CASE EVENT DATE: 20190122
